FAERS Safety Report 7123937-1 (Version None)
Quarter: 2010Q4

REPORT INFORMATION
  Report Type: 
  Country: None (occurrence: None)
  Receive Date: 20101126
  Receipt Date: 20101123
  Transmission Date: 20110411
  Serious: No
  Sender: FDA-Public Use
  Company Number: US-PFIZER INC-2010156386

PATIENT
  Sex: Male
  Weight: 92.063 kg

DRUGS (1)
  1. GEODON [Suspect]
     Indication: BIPOLAR DISORDER
     Dosage: 60 MG, 1X/DAY
     Route: 048
     Dates: start: 20101122

REACTIONS (1)
  - DYSGEUSIA [None]
